FAERS Safety Report 17641984 (Version 1)
Quarter: 2020Q2

REPORT INFORMATION
  Report Type: Spontaneous
  Country: SE (occurrence: SE)
  Receive Date: 20200407
  Receipt Date: 20200407
  Transmission Date: 20200713
  Serious: Yes (Hospitalization)
  Sender: FDA-Public Use
  Company Number: SE-CELLTRION INC.-2020SE021269

PATIENT

DRUGS (1)
  1. RITUXIMAB (UNKNOWN) [Suspect]
     Active Substance: RITUXIMAB
     Indication: MULTIPLE SCLEROSIS
     Dosage: 1000 MG
     Route: 041

REACTIONS (4)
  - Serum sickness [Recovered/Resolved]
  - Product use in unapproved indication [Unknown]
  - Arthritis [Unknown]
  - Pyrexia [Unknown]
